FAERS Safety Report 23934843 (Version 2)
Quarter: 2024Q3

REPORT INFORMATION
  Report Type: Spontaneous
  Country: US (occurrence: US)
  Receive Date: 20240604
  Receipt Date: 20240801
  Transmission Date: 20241016
  Serious: Yes (Disabling)
  Sender: JOHNSON AND JOHNSON
  Company Number: US-JNJFOC-20240579792

PATIENT
  Age: 60 Year
  Sex: Female

DRUGS (1)
  1. SPRAVATO [Suspect]
     Active Substance: ESKETAMINE
     Indication: Product used for unknown indication

REACTIONS (2)
  - Hypopnoea [Recovered/Resolved]
  - Oxygen saturation decreased [Recovered/Resolved]
